FAERS Safety Report 8151173-9 (Version None)
Quarter: 2012Q1

REPORT INFORMATION
  Report Type: 
  Country: None (occurrence: None)
  Receive Date: 20120220
  Receipt Date: 20120213
  Transmission Date: 20120608
  Serious: Yes (Death, Hospitalization)
  Sender: FDA-Public Use
  Company Number: GR-GLAXOSMITHKLINE-B0782368A

PATIENT
  Age: 62 Year
  Sex: Male

DRUGS (3)
  1. PLAVIX [Concomitant]
     Dates: start: 20120101
  2. ARIXTRA [Suspect]
     Indication: MYOCARDIAL INFARCTION
     Dosage: 2.5MG PER DAY
     Dates: start: 20120101
  3. ASPIRIN [Concomitant]
     Dates: start: 20120101

REACTIONS (1)
  - CEREBRAL HAEMORRHAGE [None]
